FAERS Safety Report 7949036-4 (Version None)
Quarter: 2011Q4

REPORT INFORMATION
  Report Type: 
  Country: None (occurrence: None)
  Receive Date: 20111130
  Receipt Date: 20111031
  Transmission Date: 20120403
  Serious: No
  Sender: FDA-Public Use
  Company Number: US-BRISTOL-MYERS SQUIBB COMPANY-16206112

PATIENT
  Age: 43 Year
  Sex: Female

DRUGS (2)
  1. KOMBIGLYZE XR [Suspect]
     Dosage: KOMBIGLYZE XR 5/500 MG
  2. LISINOPRIL [Suspect]

REACTIONS (1)
  - MYALGIA [None]
